FAERS Safety Report 13761923 (Version 2)
Quarter: 2017Q3

REPORT INFORMATION
  Report Type: Report from Study
  Country: None (occurrence: US)
  Receive Date: 20170718
  Receipt Date: 20170802
  Transmission Date: 20171127
  Serious: Yes (Hospitalization, Other)
  Sender: FDA-Public Use
  Company Number: US-ABBVIE-17K-163-1937857-00

PATIENT
  Age: 45 Year
  Sex: Female

DRUGS (2)
  1. AMOXICILLIN. [Suspect]
     Active Substance: AMOXICILLIN
     Indication: SINUSITIS
     Route: 065
  2. HUMIRA [Suspect]
     Active Substance: ADALIMUMAB
     Indication: COLITIS ULCERATIVE
     Route: 058
     Dates: start: 201607

REACTIONS (17)
  - Nausea [Recovering/Resolving]
  - Antibody test abnormal [Unknown]
  - Nasopharyngitis [Unknown]
  - Constipation [Unknown]
  - Migraine [Unknown]
  - Defaecation urgency [Unknown]
  - Pain [Recovering/Resolving]
  - Neck pain [Unknown]
  - Diarrhoea [Not Recovered/Not Resolved]
  - Epistaxis [Unknown]
  - Diarrhoea haemorrhagic [Recovered/Resolved]
  - Bone pain [Unknown]
  - Blood pressure decreased [Recovered/Resolved]
  - Musculoskeletal pain [Unknown]
  - Abdominal pain [Not Recovered/Not Resolved]
  - Loss of consciousness [Unknown]
  - Sinusitis [Recovering/Resolving]

NARRATIVE: CASE EVENT DATE: 2016
